FAERS Safety Report 14968592 (Version 2)
Quarter: 2018Q4

REPORT INFORMATION
  Report Type: Spontaneous
  Country: US (occurrence: US)
  Receive Date: 20180604
  Receipt Date: 20181008
  Transmission Date: 20190204
  Serious: Yes (Other)
  Sender: FDA-Public Use
  Company Number: US-SA-2018SA000606

PATIENT
  Age: 64 Year
  Sex: Female
  Weight: 106 kg

DRUGS (5)
  1. METFORMIN [Concomitant]
     Active Substance: METFORMIN HYDROCHLORIDE
  2. LISINOPRIL. [Concomitant]
     Active Substance: LISINOPRIL
  3. NEOSAR [Concomitant]
     Active Substance: CYCLOPHOSPHAMIDE
     Indication: BREAST CANCER
     Dosage: UNKNOWN
  4. TAXOTERE [Suspect]
     Active Substance: DOCETAXEL
     Dosage: 1 MG, QCY
     Route: 042
     Dates: start: 20150418, end: 20150418
  5. TAXOTERE [Suspect]
     Active Substance: DOCETAXEL
     Dosage: 1 MG, UNK
     Route: 042
     Dates: start: 20150516, end: 20150516

REACTIONS (5)
  - Alopecia [Recovering/Resolving]
  - Anxiety [Unknown]
  - Emotional distress [Unknown]
  - Impaired quality of life [Unknown]
  - Pain [Unknown]

NARRATIVE: CASE EVENT DATE: 20151116
